FAERS Safety Report 8100067-3 (Version None)
Quarter: 2012Q1

REPORT INFORMATION
  Report Type: 
  Country: None (occurrence: None)
  Receive Date: 20120129
  Receipt Date: 20111102
  Transmission Date: 20120608
  Serious: No
  Sender: FDA-Public Use
  Company Number: US-ABBOTT-11P-163-0870893-00

PATIENT
  Age: 63 Year
  Sex: Female

DRUGS (9)
  1. MELOXICAM [Concomitant]
     Indication: PAIN
     Dosage: DAILY
  2. PRILOSEC [Concomitant]
     Indication: GASTROOESOPHAGEAL REFLUX DISEASE
     Dosage: OVER THE COUNTER DAILY
  3. ZOLOFT [Concomitant]
     Indication: DEPRESSION
     Dosage: DAILY
  4. LEUCOVORIN CALCIUM [Concomitant]
     Indication: PRODUCT USED FOR UNKNOWN INDICATION
     Dosage: ON SUNDAYS
  5. HUMIRA [Suspect]
     Indication: RHEUMATOID ARTHRITIS
  6. PREDNISONE TAB [Concomitant]
     Indication: RHEUMATOID ARTHRITIS
     Dosage: 5MG + 2.5MG ALTERNATING DAYS
  7. METHOTREXATE [Concomitant]
     Indication: RHEUMATOID ARTHRITIS
     Dosage: 2  TABLETS SATURDAYS, 2 TABLETS SUNDAYS
  8. PREMPRO [Concomitant]
     Indication: MENOPAUSE
     Dosage: 0.3/1.5MG DAILY
  9. ZOLOFT [Concomitant]
     Indication: ANXIETY

REACTIONS (1)
  - INJECTION SITE PAIN [None]
